FAERS Safety Report 10903426 (Version 1)
Quarter: 2015Q1

REPORT INFORMATION
  Report Type: Spontaneous
  Country: JP (occurrence: None)
  Receive Date: 20150304
  Receipt Date: 20150304
  Transmission Date: 20150721
  Serious: Yes (Life-Threatening)
  Sender: FDA-Public Use
  Company Number: 2015BCR00081

PATIENT
  Age: 40 Year
  Sex: Female

DRUGS (1)
  1. RAPIACTA [Suspect]
     Active Substance: PERAMIVIR
     Indication: INFLUENZA
     Route: 042
     Dates: start: 20150106, end: 20150106

REACTIONS (4)
  - Pyrexia [None]
  - Blood pressure decreased [None]
  - Stevens-Johnson syndrome [None]
  - Speech disorder [None]

NARRATIVE: CASE EVENT DATE: 20150108
